FAERS Safety Report 19793691 (Version 1)
Quarter: 2021Q3

REPORT INFORMATION
  Report Type: Spontaneous
  Country: CA (occurrence: CA)
  Receive Date: 20210906
  Receipt Date: 20210906
  Transmission Date: 20211014
  Serious: Yes (Other)
  Sender: FDA-Public Use
  Company Number: CA-TEVA-2021-CA-1948261

PATIENT
  Age: 37 Year
  Sex: Female
  Weight: 47 kg

DRUGS (17)
  1. SANDOZ PREDNISOLONE [Concomitant]
     Active Substance: PREDNISOLONE
  2. PROBIOTIC [Concomitant]
     Active Substance: PROBIOTICS NOS
  3. TRAZODONE [Concomitant]
     Active Substance: TRAZODONE HYDROCHLORIDE
  4. MONTELUKAST FILM?COATED TABLETS [Concomitant]
  5. APO PREDNISONE TAB 5MG [Suspect]
     Active Substance: PREDNISONE
     Indication: SPONDYLITIS
  6. ARNUITY ELLIPTA [Concomitant]
     Active Substance: FLUTICASONE FUROATE
  7. ESCITALOPRAM [Concomitant]
     Active Substance: ESCITALOPRAM OXALATE
  8. LAX?A?DAY PHARMA [Concomitant]
  9. CELECOXIB. [Suspect]
     Active Substance: CELECOXIB
     Indication: SPONDYLITIS
     Dosage: 100 MILLIGRAM DAILY;
  10. TEVA?SALBUTAMOL HFA [Concomitant]
     Active Substance: ALBUTEROL
  11. AEROCHAMBRE PLUS [Concomitant]
  12. APO?CETIRIZINE [Concomitant]
     Active Substance: CETIRIZINE HYDROCHLORIDE
  13. BRICANYL [Concomitant]
     Active Substance: TERBUTALINE SULFATE
  14. CIMZIA SINGLE?USE AUTOINJECTOR [Concomitant]
  15. AVAMYS [Concomitant]
     Active Substance: FLUTICASONE FUROATE
  16. D?GEL 1000 [Concomitant]
  17. OMEGA 3 SELECT [Concomitant]
     Active Substance: FISH OIL

REACTIONS (5)
  - Diarrhoea [Recovered/Resolved]
  - Rectal haemorrhage [Recovered/Resolved]
  - Haematemesis [Recovered/Resolved]
  - Mucous stools [Recovered/Resolved]
  - Vomiting [Recovered/Resolved]
